FAERS Safety Report 24155306 (Version 1)
Quarter: 2024Q3

REPORT INFORMATION
  Report Type: Report from Study
  Country: US (occurrence: US)
  Receive Date: 20240731
  Receipt Date: 20240731
  Transmission Date: 20241017
  Serious: Yes (Hospitalization, Other)
  Sender: ABBVIE
  Company Number: US-ABBVIE-5857025

PATIENT
  Sex: Female

DRUGS (1)
  1. HUMIRA [Suspect]
     Active Substance: ADALIMUMAB
     Indication: Psoriasis
     Route: 058
     Dates: start: 20240610

REACTIONS (8)
  - Liver abscess [Recovering/Resolving]
  - Urinary bladder haemorrhage [Unknown]
  - Septic shock [Unknown]
  - Combined immunodeficiency [Unknown]
  - Urinary retention [Unknown]
  - Abdominal pain upper [Unknown]
  - Vomiting [Unknown]
  - Acute kidney injury [Unknown]

NARRATIVE: CASE EVENT DATE: 20240101
